FAERS Safety Report 13207951 (Version 1)
Quarter: 2017Q1

REPORT INFORMATION
  Report Type: Spontaneous
  Country: US (occurrence: US)
  Receive Date: 20170209
  Receipt Date: 20170209
  Transmission Date: 20170428
  Serious: No
  Sender: FDA-Public Use
  Company Number: US-TEVA-729840USA

PATIENT
  Sex: Male
  Weight: 14.98 kg

DRUGS (1)
  1. QVAR [Suspect]
     Active Substance: BECLOMETHASONE DIPROPIONATE
     Indication: ASTHMA
     Dosage: 2 PUFFS IN THE MORNING AND 2 PUFFS AT NIGHT
     Dates: start: 201603

REACTIONS (3)
  - Asthma [Unknown]
  - Tooth fracture [Unknown]
  - Dental caries [Not Recovered/Not Resolved]
